FAERS Safety Report 25123857 (Version 2)
Quarter: 2025Q2

REPORT INFORMATION
  Report Type: Report from Study
  Country: CA (occurrence: CA)
  Receive Date: 20250326
  Receipt Date: 20250402
  Transmission Date: 20250717
  Serious: Yes (Hospitalization, Other)
  Sender: JOHNSON AND JOHNSON
  Company Number: CA-JNJFOC-20250266570

PATIENT
  Age: 13 Year
  Sex: Female

DRUGS (3)
  1. REMICADE [Suspect]
     Active Substance: INFLIXIMAB
     Indication: Tolosa-Hunt syndrome
     Route: 041
     Dates: start: 20230516
  2. REMICADE [Suspect]
     Active Substance: INFLIXIMAB
     Route: 041
     Dates: start: 20230530
  3. REMICADE [Suspect]
     Active Substance: INFLIXIMAB
     Route: 041

REACTIONS (5)
  - Hospitalisation [Unknown]
  - Lymphadenopathy [Recovering/Resolving]
  - Scleral discolouration [Not Recovered/Not Resolved]
  - Weight increased [Unknown]
  - Therapy change [Unknown]

NARRATIVE: CASE EVENT DATE: 20250301
